FAERS Safety Report 26065909 (Version 1)
Quarter: 2025Q4

REPORT INFORMATION
  Report Type: Spontaneous
  Country: US (occurrence: US)
  Receive Date: 20251119
  Receipt Date: 20251119
  Transmission Date: 20260118
  Serious: Yes (Other)
  Sender: NOVO NORDISK
  Company Number: US-NOVOPROD-1565756

PATIENT
  Age: 87 Year
  Sex: Female

DRUGS (2)
  1. NOVOLOG [Suspect]
     Active Substance: INSULIN ASPART
     Dosage: AVERAGE 6 UNITS SLIDING SCALE(RESTARTED)
     Dates: start: 201901
  2. NOVOLOG [Suspect]
     Active Substance: INSULIN ASPART
     Indication: Type 2 diabetes mellitus
     Dosage: UNK

REACTIONS (3)
  - Cataract [Unknown]
  - Glaucoma [Recovered/Resolved]
  - Disease recurrence [Unknown]
